FAERS Safety Report 25357348 (Version 1)
Quarter: 2025Q2

REPORT INFORMATION
  Report Type: Report from Study
  Country: BR (occurrence: BR)
  Receive Date: 20250526
  Receipt Date: 20250526
  Transmission Date: 20250717
  Serious: Yes (Other)
  Sender: TAKEDA
  Company Number: BR-TAKEDA-2024TUS106048

PATIENT
  Age: 59 Year
  Sex: Female

DRUGS (5)
  1. VEDOLIZUMAB [Suspect]
     Active Substance: VEDOLIZUMAB
     Indication: Colitis ulcerative
  2. LOSARTAN [Concomitant]
     Active Substance: LOSARTAN
     Indication: Blood pressure measurement
  3. PREGABALIN [Concomitant]
     Active Substance: PREGABALIN
     Indication: Psychotherapy
  4. QUETIAPINE [Concomitant]
     Active Substance: QUETIAPINE
     Indication: Psychotherapy
  5. PREDNISONE [Concomitant]
     Active Substance: PREDNISONE

REACTIONS (11)
  - Skin cancer [Recovered/Resolved]
  - Constipation [Not Recovered/Not Resolved]
  - Headache [Recovering/Resolving]
  - Pain [Recovering/Resolving]
  - Depression [Recovering/Resolving]
  - Inappropriate schedule of product administration [Recovered/Resolved]
  - Post procedural inflammation [Recovered/Resolved]
  - Malaise [Unknown]
  - Abdominal pain [Unknown]
  - Fatigue [Recovering/Resolving]
  - Influenza [Recovered/Resolved]

NARRATIVE: CASE EVENT DATE: 20240529
